FAERS Safety Report 6234846-4 (Version None)
Quarter: 2009Q2

REPORT INFORMATION
  Report Type: 
  Country: None (occurrence: None)
  Receive Date: 20090618
  Receipt Date: 20090611
  Transmission Date: 20091009
  Serious: Yes (Other)
  Sender: FDA-Public Use
  Company Number: US-MERCK-0806USA08542

PATIENT
  Age: 46 Year
  Sex: Female

DRUGS (1)
  1. FOSAMAX [Suspect]
     Route: 048
     Dates: end: 20000101

REACTIONS (7)
  - BREAST NEOPLASM [None]
  - DEVICE RELATED INFECTION [None]
  - FALL [None]
  - ORTHODONTIC APPLIANCE COMPLICATION [None]
  - OSTEONECROSIS [None]
  - TOOTH DISORDER [None]
  - TOOTH INFECTION [None]
